FAERS Safety Report 7969180-5 (Version None)
Quarter: 2011Q4

REPORT INFORMATION
  Report Type: 
  Country: None (occurrence: None)
  Receive Date: 20111209
  Receipt Date: 20111207
  Transmission Date: 20120403
  Serious: Yes (Hospitalization, Other)
  Sender: FDA-Public Use
  Company Number: US-PFIZER INC-2011299250

PATIENT
  Sex: Female
  Weight: 72.562 kg

DRUGS (3)
  1. NORCO [Concomitant]
     Indication: ARTHROPATHY
     Dosage: UNK
  2. CHANTIX [Suspect]
     Indication: SMOKING CESSATION THERAPY
     Dosage: 0.5 MG, 1X/DAY
     Route: 048
     Dates: start: 20111025, end: 20110101
  3. CHANTIX [Interacting]
     Dosage: UNK
     Route: 048
     Dates: start: 20110101, end: 20111126

REACTIONS (2)
  - SUICIDE ATTEMPT [None]
  - DRUG INTERACTION [None]
